FAERS Safety Report 8114781-7 (Version None)
Quarter: 2012Q1

REPORT INFORMATION
  Report Type: 
  Country: None (occurrence: None)
  Receive Date: 20120206
  Receipt Date: 20120123
  Transmission Date: 20120608
  Serious: Yes (Hospitalization, Other)
  Sender: FDA-Public Use
  Company Number: US-ELI_LILLY_AND_COMPANY-US201112007206

PATIENT
  Sex: Female

DRUGS (9)
  1. PRILOSEC [Concomitant]
     Dosage: UNK, QD
  2. MULTI-VITAMIN [Concomitant]
  3. ASPIRIN [Concomitant]
     Dosage: 81 MG, UNK
  4. FORTEO [Suspect]
     Dosage: 20 UG, QD
  5. ATENOLOL [Concomitant]
     Dosage: 25 MG, QD
  6. FISH OIL [Concomitant]
  7. FERROUS SULFATE TAB [Concomitant]
     Indication: ANAEMIA
  8. FORTEO [Suspect]
     Indication: OSTEOPOROSIS
     Dosage: 20 UG, QD
  9. CALCIUM 600 PLUS VITAMIN D [Concomitant]

REACTIONS (3)
  - HIP ARTHROPLASTY [None]
  - HOSPITALISATION [None]
  - FEMUR FRACTURE [None]
